FAERS Safety Report 9387989 (Version 1)
Quarter: 2013Q3

REPORT INFORMATION
  Report Type: Report from Study
  Country: DE (occurrence: DE)
  Receive Date: 20130708
  Receipt Date: 20130708
  Transmission Date: 20140515
  Serious: Yes (Death, Hospitalization, Other)
  Sender: FDA-Public Use
  Company Number: DE-UCBSA-076386

PATIENT
  Age: 77 Year
  Sex: Male

DRUGS (3)
  1. NEUPRO [Suspect]
     Indication: PARKINSON^S DISEASE
     Dosage: DAILY DOSE-4 MG, NO OF PATCHES:1
     Route: 062
     Dates: start: 20120921, end: 20121225
  2. UNACID [Concomitant]
     Indication: BODY TEMPERATURE
     Dates: start: 20121221
  3. VANCOMYCIN [Concomitant]
     Indication: STAPHYLOCOCCAL INFECTION
     Dates: start: 20121222

REACTIONS (5)
  - Cardio-respiratory arrest [Fatal]
  - Pneumonia staphylococcal [Unknown]
  - Atrial fibrillation [Unknown]
  - Ventricular fibrillation [Unknown]
  - Pulseless electrical activity [Unknown]
